FAERS Safety Report 8701521 (Version 2)
Quarter: 2012Q4

REPORT INFORMATION
  Report Type: 
  Country: SI (occurrence: SI)
  Receive Date: 20120802
  Receipt Date: 20121006
  Transmission Date: 20130627
  Serious: Yes (Life-Threatening, Hospitalization)
  Sender: FDA-Public Use
  Company Number: SI-AMGEN-SVNSP2012047984

PATIENT
  Age: 76 Year
  Sex: Female

DRUGS (18)
  1. PROLIA [Suspect]
     Indication: OSTEOPOROSIS
     Dosage: 60 mg, q6mo
     Route: 058
     Dates: start: 20120314
  2. CALCIUM [Concomitant]
  3. VITAMIN D /00107901/ [Concomitant]
  4. ASPIRIN [Concomitant]
  5. NOLPAZA [Concomitant]
  6. MICARDIS [Concomitant]
  7. BISOPROLOL FUMARATE [Concomitant]
  8. KEPPRA [Concomitant]
     Indication: EPILEPSY
  9. VIMPAT [Concomitant]
     Indication: EPILEPSY
  10. PROPOFOL [Concomitant]
     Indication: EPILEPSY
  11. EDEMID [Concomitant]
  12. DIAMOX                             /00016901/ [Concomitant]
  13. ALDACTONE                          /00006201/ [Concomitant]
  14. POTASSIUM [Concomitant]
  15. MAGNESIUM [Concomitant]
  16. NOREPINEPHRINE [Concomitant]
  17. CORDARONE [Concomitant]
  18. DEXAMETHASON                       /00016001/ [Concomitant]

REACTIONS (6)
  - Thrombotic thrombocytopenic purpura [Recovered/Resolved]
  - Coma [Recovered/Resolved]
  - Epilepsy [Recovered/Resolved]
  - Nervous system disorder [Unknown]
  - Amnesia [Not Recovered/Not Resolved]
  - Motor dysfunction [Not Recovered/Not Resolved]
